FAERS Safety Report 25858606 (Version 1)
Quarter: 2025Q3

REPORT INFORMATION
  Report Type: Spontaneous
  Country: US (occurrence: US)
  Receive Date: 20250929
  Receipt Date: 20250929
  Transmission Date: 20251020
  Serious: No
  Sender: STRIDES
  Company Number: US-STRIDES ARCOLAB LIMITED-2025SP002955

PATIENT
  Age: 60 Year
  Sex: Female

DRUGS (5)
  1. PREDNISONE [Suspect]
     Active Substance: PREDNISONE
     Indication: Palmoplantar pustulosis
     Route: 065
  2. PREDNISONE [Suspect]
     Active Substance: PREDNISONE
     Indication: Pustular psoriasis
  3. IXEKIZUMAB [Suspect]
     Active Substance: IXEKIZUMAB
     Indication: Palmoplantar pustulosis
     Route: 065
  4. IXEKIZUMAB [Suspect]
     Active Substance: IXEKIZUMAB
     Indication: Pustular psoriasis
  5. ADALIMUMAB [Concomitant]
     Active Substance: ADALIMUMAB
     Indication: Psoriatic arthropathy
     Route: 065

REACTIONS (2)
  - Treatment failure [Unknown]
  - Off label use [Unknown]
